FAERS Safety Report 15957097 (Version 1)
Quarter: 2019Q1

REPORT INFORMATION
  Report Type: Spontaneous
  Country: US (occurrence: US)
  Receive Date: 20190213
  Receipt Date: 20190213
  Transmission Date: 20190417
  Serious: No
  Sender: FDA-Public Use
  Company Number: US-ENDO PHARMACEUTICALS INC-2018-024512

PATIENT
  Sex: Female

DRUGS (1)
  1. NASCOBAL [Suspect]
     Active Substance: CYANOCOBALAMIN
     Indication: PRODUCT USED FOR UNKNOWN INDICATION
     Dosage: 500 ?G, ONE SPRAY IN THE NOSTRIL
     Route: 045

REACTIONS (3)
  - Heart rate increased [Unknown]
  - Flushing [Unknown]
  - Malaise [Unknown]

NARRATIVE: CASE EVENT DATE: 20180306
